FAERS Safety Report 4753199-1 (Version None)
Quarter: 2005Q3

REPORT INFORMATION
  Report Type: 
  Country: None (occurrence: None)
  Receive Date: 20050824
  Receipt Date: 20050810
  Transmission Date: 20060218
  Serious: No
  Sender: FDA-Public Use
  Company Number: 2005BI014335

PATIENT
  Age: 60 Year
  Sex: Female

DRUGS (1)
  1. AVONEX [Suspect]
     Indication: MULTIPLE SCLEROSIS
     Dosage: 30 UG; QW; IM
     Route: 030
     Dates: start: 20021025

REACTIONS (5)
  - BACK INJURY [None]
  - FALL [None]
  - HYPOAESTHESIA [None]
  - PARALYSIS [None]
  - VISUAL ACUITY REDUCED [None]
